FAERS Safety Report 13151088 (Version 2)
Quarter: 2017Q1

REPORT INFORMATION
  Report Type: Spontaneous
  Country: DE (occurrence: KR)
  Receive Date: 20170125
  Receipt Date: 20170307
  Transmission Date: 20170428
  Serious: Yes (Other)
  Sender: FDA-Public Use
  Company Number: DE-JNJFOC-20170121045

PATIENT

DRUGS (1)
  1. METHYLPHENIDATE HYDROCHLORIDE. [Suspect]
     Active Substance: METHYLPHENIDATE HYDROCHLORIDE
     Indication: ATTENTION DEFICIT/HYPERACTIVITY DISORDER
     Route: 065

REACTIONS (5)
  - Arrhythmia [Unknown]
  - Hypertension [Unknown]
  - Cerebrovascular accident [Unknown]
  - Cardiac failure [Unknown]
  - Myocardial infarction [Unknown]
